FAERS Safety Report 8602196-4 (Version None)
Quarter: 2012Q3

REPORT INFORMATION
  Report Type: 
  Country: None (occurrence: None)
  Receive Date: 20120817
  Receipt Date: 20120810
  Transmission Date: 20120928
  Serious: Yes (Other)
  Sender: FDA-Public Use
  Company Number: US-PFIZER INC-2012091420

PATIENT
  Sex: Male

DRUGS (2)
  1. NEURONTIN [Suspect]
     Dosage: UNK
     Route: 048
  2. LYRICA [Suspect]
     Dosage: UNK
     Route: 048

REACTIONS (6)
  - PAIN IN EXTREMITY [None]
  - BACK PAIN [None]
  - GAIT DISTURBANCE [None]
  - PAIN [None]
  - DYSPNOEA [None]
  - FEELING ABNORMAL [None]
